FAERS Safety Report 25151746 (Version 1)
Quarter: 2025Q2

REPORT INFORMATION
  Report Type: Spontaneous
  Country: CN (occurrence: CN)
  Receive Date: 20250402
  Receipt Date: 20250402
  Transmission Date: 20250716
  Serious: Yes (Other)
  Sender: NOVARTIS
  Company Number: CN-002147023-NVSC2025CN052393

PATIENT
  Age: 56 Year
  Sex: Female
  Weight: 65 kg

DRUGS (5)
  1. CYCLOSPORINE [Suspect]
     Active Substance: CYCLOSPORINE
     Indication: Graft versus host disease
     Dosage: 80.000 MG, QD
     Route: 041
     Dates: start: 20250224, end: 20250302
  2. CYCLOSPORINE [Suspect]
     Active Substance: CYCLOSPORINE
     Dosage: 90 MG, QD
     Route: 041
     Dates: start: 20250302, end: 20250307
  3. CYCLOSPORINE [Suspect]
     Active Substance: CYCLOSPORINE
     Dosage: 100 MG, QD
     Route: 041
     Dates: start: 20250307, end: 20250316
  4. CYCLOSPORINE [Suspect]
     Active Substance: CYCLOSPORINE
     Dosage: 80.000 MG, QD
     Route: 041
     Dates: start: 20250316, end: 20250318
  5. VORICONAZOLE [Suspect]
     Active Substance: VORICONAZOLE
     Indication: Fungal infection
     Dosage: 0.150 G, BID
     Route: 041
     Dates: start: 20250218, end: 20250318

REACTIONS (11)
  - Demyelination [Unknown]
  - Mastoiditis [Unknown]
  - Cerebral atrophy [Unknown]
  - Ischaemic cerebral infarction [Unknown]
  - Mental disorder [Recovering/Resolving]
  - Neurological symptom [Unknown]
  - Chronic rhinosinusitis with nasal polyps [Unknown]
  - Abnormal behaviour [Unknown]
  - Persecutory delusion [Unknown]
  - Central nervous system lesion [Unknown]
  - Cerebral haemosiderin deposition [Unknown]

NARRATIVE: CASE EVENT DATE: 20250318
